FAERS Safety Report 7801464-3 (Version None)
Quarter: 2011Q4

REPORT INFORMATION
  Report Type: 
  Country: None (occurrence: None)
  Receive Date: 20111006
  Receipt Date: 20111006
  Transmission Date: 20120403
  Serious: Yes (Hospitalization)
  Sender: FDA-Public Use
  Company Number: None

PATIENT
  Age: 59 Year
  Sex: Male
  Weight: 145.3 kg

DRUGS (2)
  1. ASPIRIN [Suspect]
     Indication: CEREBROVASCULAR ACCIDENT PROPHYLAXIS
     Dosage: 81 MG EVERY DAY PO
     Route: 048
     Dates: start: 20110727, end: 20110731
  2. CLOPIDOGREL [Suspect]
     Indication: CEREBROVASCULAR ACCIDENT PROPHYLAXIS
     Dosage: 75 MG EVERY DAY PO
     Route: 048
     Dates: start: 20010731, end: 20110731

REACTIONS (2)
  - EROSIVE OESOPHAGITIS [None]
  - GASTRIC ULCER [None]
